FAERS Safety Report 18521503 (Version 1)
Quarter: 2020Q4

REPORT INFORMATION
  Report Type: Spontaneous
  Country: US (occurrence: US)
  Receive Date: 20201118
  Receipt Date: 20201118
  Transmission Date: 20210114
  Serious: No
  Sender: FDA-Public Use
  Company Number: None

PATIENT
  Age: 65 Year
  Sex: Male
  Weight: 95.13 kg

DRUGS (2)
  1. DOCETAXEL. [Suspect]
     Active Substance: DOCETAXEL
     Indication: PROSTATE CANCER METASTATIC
     Dosage: ?          OTHER FREQUENCY:EVERY 3 WEEKS;?
     Route: 041
  2. DOCETAXEL. [Concomitant]
     Active Substance: DOCETAXEL
     Dates: start: 20201118, end: 20201118

REACTIONS (3)
  - Dysphagia [None]
  - Aphasia [None]
  - Flushing [None]

NARRATIVE: CASE EVENT DATE: 20201118
